FAERS Safety Report 10329569 (Version 1)
Quarter: 2014Q3

REPORT INFORMATION
  Report Type: Spontaneous
  Country: DK (occurrence: AU)
  Receive Date: 20140721
  Receipt Date: 20140721
  Transmission Date: 20150326
  Serious: Yes (Other)
  Sender: FDA-Public Use
  Company Number: AU-FRI-1000068993

PATIENT
  Age: 74 Year
  Sex: Female

DRUGS (10)
  1. SOLIFENACIN SUCCINATE [Suspect]
     Active Substance: SOLIFENACIN SUCCINATE
  2. ESCITALOPRAM [Suspect]
     Active Substance: ESCITALOPRAM OXALATE
  3. IRBESARTAN. [Suspect]
     Active Substance: IRBESARTAN
  4. SITAGLIPTIN-METFORMIN [Suspect]
     Active Substance: METFORMIN\SITAGLIPTIN
  5. STRONTIUM RANELATE [Suspect]
     Active Substance: STRONTIUM RANELATE
  6. CARVEDILOL HYDROCHLORIDE [Suspect]
     Active Substance: CARVEDILOL HYDROCHLORIDE
  7. PANTOPRAZOLE [Suspect]
     Active Substance: PANTOPRAZOLE SODIUM
  8. ATORVASTATIN [Suspect]
     Active Substance: ATORVASTATIN
  9. DIGOXIN. [Suspect]
     Active Substance: DIGOXIN
  10. WARFARIN SODIUM. [Suspect]
     Active Substance: WARFARIN SODIUM

REACTIONS (4)
  - Hemiparesis [Not Recovered/Not Resolved]
  - Confusional state [Not Recovered/Not Resolved]
  - Syncope [Not Recovered/Not Resolved]
  - Aphasia [Not Recovered/Not Resolved]

NARRATIVE: CASE EVENT DATE: 20140427
